FAERS Safety Report 9549880 (Version 1)
Quarter: 2013Q3

REPORT INFORMATION
  Report Type: Report from Study
  Country: US (occurrence: US)
  Receive Date: 20130924
  Receipt Date: 20130924
  Transmission Date: 20140515
  Serious: Yes (Hospitalization, Disabling)
  Sender: FDA-Public Use
  Company Number: US-ACTELION-A-US2013-88704

PATIENT
  Age: 60 Year
  Sex: Female

DRUGS (18)
  1. TRACLEER [Suspect]
     Indication: PULMONARY ARTERIAL HYPERTENSION
     Dosage: 125 MG, BID
     Route: 048
     Dates: start: 200906
  2. TRACLEER [Suspect]
     Dosage: 62.5 MG, BID
     Route: 048
     Dates: start: 200906
  3. GABAPENTIN [Concomitant]
     Dosage: 1200 MG, TID
  4. ASPIRIN [Concomitant]
     Dosage: 81 MG, BID
  5. CARBATROL [Concomitant]
     Dosage: 400 MG, BID
  6. METOPROLOL [Concomitant]
     Dosage: 25 MG, UNK
  7. LISINOPRIL [Concomitant]
     Dosage: 10 MG, UNK
  8. SIMVASTATIN [Concomitant]
     Dosage: 20 MG, UNK
  9. FERROUS SULFATE [Concomitant]
     Dosage: 325 MG, QID
  10. VITAMIN D3 [Concomitant]
     Dosage: 10000 U, UNK
  11. CYMBALTA [Concomitant]
     Dosage: 60 MG, UNK
  12. FUROSEMIDE [Concomitant]
     Dosage: 40 MG, UNK
  13. MYCOPHENOLATE [Concomitant]
     Dosage: 1000 MG, BID
  14. HYDROXYZINE [Concomitant]
     Dosage: 25 MG, QID
  15. NORCO [Concomitant]
     Dosage: 12.325 MG, UNK
  16. TOPIRAMATE [Concomitant]
     Dosage: 75 MG, UNK
  17. COUMADIN [Concomitant]
     Dosage: 7.5 MG, UNK
  18. COUMADIN [Concomitant]
     Dosage: 10 MG QOD

REACTIONS (5)
  - Paralysis [Not Recovered/Not Resolved]
  - Neuromyelitis optica [Not Recovered/Not Resolved]
  - Gait disturbance [Not Recovered/Not Resolved]
  - Pain [Not Recovered/Not Resolved]
  - Muscle spasms [Not Recovered/Not Resolved]
